FAERS Safety Report 25567164 (Version 2)
Quarter: 2025Q3

REPORT INFORMATION
  Report Type: Report from Study
  Country: EU (occurrence: EU)
  Receive Date: 20250716
  Receipt Date: 20250814
  Transmission Date: 20251021
  Serious: Yes (Hospitalization)
  Sender: ROCHE
  Company Number: EU-ROCHE-10000336404

PATIENT
  Age: 43 Year
  Sex: Female
  Weight: 63 kg

DRUGS (5)
  1. ITOVEBI [Suspect]
     Active Substance: INAVOLISIB
     Indication: Breast cancer metastatic
     Route: 048
     Dates: start: 20250617
  2. PALBOCICLIB [Suspect]
     Active Substance: PALBOCICLIB
     Indication: Breast cancer metastatic
     Route: 065
     Dates: start: 20250515
  3. GOSERELIN [Concomitant]
     Active Substance: GOSERELIN
     Indication: Breast cancer
  4. FULVESTRANT [Concomitant]
     Active Substance: FULVESTRANT
     Indication: Breast cancer
     Dates: start: 20250515
  5. ZOMETA [Concomitant]
     Active Substance: ZOLEDRONIC ACID

REACTIONS (5)
  - Headache [Not Recovered/Not Resolved]
  - Stomatitis [Recovering/Resolving]
  - Vision blurred [Not Recovered/Not Resolved]
  - Tooth infection [Not Recovered/Not Resolved]
  - Pain in jaw [Not Recovered/Not Resolved]

NARRATIVE: CASE EVENT DATE: 20250617
